FAERS Safety Report 10195199 (Version 3)
Quarter: 2014Q2

REPORT INFORMATION
  Report Type: Spontaneous
  Country: JP (occurrence: JP)
  Receive Date: 20140526
  Receipt Date: 20140609
  Transmission Date: 20141212
  Serious: Yes (Other)
  Sender: FDA-Public Use
  Company Number: JP-ELI_LILLY_AND_COMPANY-JP201404008283

PATIENT
  Age: 75 Year
  Sex: Male

DRUGS (5)
  1. ALIMTA [Suspect]
     Indication: NON-SMALL CELL LUNG CANCER
     Dosage: UNK
     Route: 042
     Dates: start: 201310
  2. BEVACIZUMAB [Concomitant]
     Indication: NON-SMALL CELL LUNG CANCER
     Dosage: UNK
     Route: 065
     Dates: start: 201310
  3. CARBOPLATIN [Concomitant]
     Indication: NON-SMALL CELL LUNG CANCER
     Dosage: UNK
     Route: 065
     Dates: start: 201310
  4. PANVITAN [Concomitant]
     Indication: PROPHYLAXIS
     Route: 065
  5. METHYCOBAL [Concomitant]
     Indication: PROPHYLAXIS
     Route: 065

REACTIONS (2)
  - Nasal septum perforation [Unknown]
  - Thrombosis [Unknown]
